FAERS Safety Report 8840080 (Version 2)
Quarter: 2012Q4

REPORT INFORMATION
  Report Type: Spontaneous
  Country: US (occurrence: None)
  Receive Date: 20121011
  Receipt Date: 20121024
  Transmission Date: 20130627
  Serious: Yes (Other)
  Sender: FDA-Public Use
  Company Number: JPI-P-025537

PATIENT
  Age: 55 Year
  Sex: Female
  Weight: 61.24 kg

DRUGS (13)
  1. XYREM [Suspect]
     Indication: NARCOLEPSY
     Dosage: 4.5 GM (2.25 GM, 2 IN 1 D) , Oral
     Route: 048
     Dates: start: 20120402
  2. XYREM [Suspect]
     Indication: CHRONIC FATIGUE
     Dosage: 4.5 GM (2.25 GM, 2 IN 1 D) , Oral
     Route: 048
     Dates: start: 20120402
  3. XYREM [Suspect]
     Indication: NARCOLEPSY
     Dosage: , ORAL
     Route: 048
  4. XYREM [Suspect]
     Indication: CHRONIC FATIGUE
     Dosage: , ORAL
     Route: 048
  5. XYREM [Suspect]
     Indication: NARCOLEPSY
     Dosage: 9 gm (4.5 gm, 2 in 1 D), Oral
     Route: 048
     Dates: start: 20120516
  6. XYREM [Suspect]
     Indication: CHRONIC FATIGUE
     Dosage: 9 gm (4.5 gm, 2 in 1 D), Oral
     Route: 048
     Dates: start: 20120516
  7. XYREM [Suspect]
     Indication: NARCOLEPSY
     Dosage: (2.25 gm, 2 in 1 D), Oral
     Route: 048
  8. XYREM [Suspect]
     Indication: CHRONIC FATIGUE
     Dosage: (2.25 gm, 2 in 1 D), Oral
     Route: 048
  9. XYREM [Suspect]
     Indication: NARCOLEPSY
     Dosage: (4.5 gm 1st dose, 2.25 gm 2nd dose)
     Route: 048
     Dates: start: 20120914
  10. XYREM [Suspect]
     Indication: CHRONIC FATIGUE
     Dosage: (4.5 gm 1st dose, 2.25 gm 2nd dose)
     Route: 048
     Dates: start: 20120914
  11. DULOXETINE [Concomitant]
  12. ARMODAFINIL [Concomitant]
  13. PRAMIPEXOLE DIHYDROCHLORIDE [Concomitant]

REACTIONS (13)
  - Weight fluctuation [None]
  - Fall [None]
  - Head injury [None]
  - Contusion [None]
  - Eye injury [None]
  - Loss of consciousness [None]
  - Product taste abnormal [None]
  - Feeling abnormal [None]
  - Laceration [None]
  - Drug effect decreased [None]
  - Insomnia [None]
  - Initial insomnia [None]
  - Contusion [None]
